FAERS Safety Report 6963650-4 (Version None)
Quarter: 2010Q3

REPORT INFORMATION
  Report Type: 
  Country: None (occurrence: None)
  Receive Date: 20100902
  Receipt Date: 20100827
  Transmission Date: 20110219
  Serious: Yes (Other)
  Sender: FDA-Public Use
  Company Number: JP-ABBOTT-10P-087-0666765-00

PATIENT
  Age: 45 Year
  Sex: Male

DRUGS (3)
  1. KLARICID TABLETS [Suspect]
     Indication: PRODUCT USED FOR UNKNOWN INDICATION
     Dosage: FORM STRENGTH: 200MG
     Dates: start: 20090701, end: 20090701
  2. UNKNOWN MEDICATION [Suspect]
     Indication: PRODUCT USED FOR UNKNOWN INDICATION
  3. UNKNOWN MEDICATION [Suspect]

REACTIONS (1)
  - ERYTHEMA MULTIFORME [None]
